FAERS Safety Report 19502088 (Version 7)
Quarter: 2022Q3

REPORT INFORMATION
  Report Type: Report from Study
  Country: US (occurrence: US)
  Receive Date: 20210707
  Receipt Date: 20220823
  Transmission Date: 20221026
  Serious: No
  Sender: FDA-Public Use
  Company Number: NVSC2021US147428

PATIENT
  Age: 9 Year
  Sex: Male

DRUGS (4)
  1. ILARIS [Suspect]
     Active Substance: CANAKINUMAB
     Indication: Pyrexia
     Dosage: 64 MG, EVERY 6 WEEKS
     Route: 058
     Dates: start: 20201019
  2. ILARIS [Suspect]
     Active Substance: CANAKINUMAB
     Dosage: 64 MG, EVERY 4 WEEKS
     Route: 058
     Dates: start: 2020
  3. ILARIS [Suspect]
     Active Substance: CANAKINUMAB
     Dosage: 64 MG, EVERY 6 WEEKS (DOSE CHANGED FROM EVERY 4 WEEKS TO EVERY 6 WEEKS)
     Route: 058
     Dates: start: 20210624
  4. ILARIS [Suspect]
     Active Substance: CANAKINUMAB
     Dosage: 64 MG, EVERY 5 WEEKS
     Route: 058
     Dates: start: 2020

REACTIONS (3)
  - COVID-19 [Recovered/Resolved]
  - Inappropriate schedule of product administration [Recovered/Resolved]
  - Incorrect dose administered [Recovered/Resolved]

NARRATIVE: CASE EVENT DATE: 20210626
